FAERS Safety Report 7465718-5 (Version None)
Quarter: 2011Q2

REPORT INFORMATION
  Report Type: 
  Country: None (occurrence: None)
  Receive Date: 20110509
  Receipt Date: 20110428
  Transmission Date: 20111010
  Serious: Yes (Other)
  Sender: FDA-Public Use
  Company Number: B0717609A

PATIENT
  Sex: Female

DRUGS (8)
  1. PROPRANOLOL [Concomitant]
     Dosage: 40MG PER DAY
     Route: 048
  2. REQUIP [Suspect]
     Indication: PARKINSON'S DISEASE
     Route: 048
     Dates: start: 20100630, end: 20100701
  3. NORMABEL [Concomitant]
     Dosage: 2MG PER DAY
     Route: 048
  4. AMLODIPINE BESYLATE [Concomitant]
     Dosage: 5MG PER DAY
     Route: 048
  5. IRUZID [Concomitant]
     Indication: HYPERTENSION
     Route: 048
  6. PRAMIPEXOLE DIHYDROCHLORIDE [Suspect]
     Route: 065
  7. NAKOM [Concomitant]
     Indication: PARKINSON'S DISEASE
     Dosage: 125MG PER DAY
     Route: 048
  8. OXAZEPAM [Concomitant]
     Dosage: 15MG PER DAY
     Route: 048

REACTIONS (7)
  - HYPERHIDROSIS [None]
  - ASTHENIA [None]
  - HALLUCINATION, VISUAL [None]
  - CHOREA [None]
  - HEADACHE [None]
  - DYSKINESIA [None]
  - NAUSEA [None]
